FAERS Safety Report 6389033-6 (Version None)
Quarter: 2009Q4

REPORT INFORMATION
  Report Type: 
  Country: None (occurrence: None)
  Receive Date: 20091001
  Receipt Date: 20090922
  Transmission Date: 20100525
  Serious: Yes (Life-Threatening, Hospitalization, Disabling)
  Sender: FDA-Public Use
  Company Number: ADR30022009

PATIENT
  Age: 72 Year
  Sex: Male

DRUGS (22)
  1. RAMIPRIL [Suspect]
     Indication: HYPERTENSION
     Route: 048
     Dates: start: 20061215, end: 20061222
  2. AMITRIPTYLINE HYDROCHLORIDE [Concomitant]
  3. ASPIRIN [Concomitant]
  4. ATORVASTATIN CALCIUM [Concomitant]
  5. BENDROFLUAZIDE [Concomitant]
  6. BENDROFLUMETHIAZIDE [Concomitant]
  7. BENZYDAMINE HYDROCHLORIDE [Concomitant]
  8. DOXAZOSIN MESYLATE [Concomitant]
  9. FENOFIBRATE [Concomitant]
  10. FUROSEMIDE [Concomitant]
  11. GAVISCON [Concomitant]
  12. GLYCERYL TRINITRATE [Concomitant]
  13. ISOSORBIDE DINITRATE [Concomitant]
  14. LANSOPRAZOLE [Concomitant]
  15. MELOXICAM [Concomitant]
  16. METFORMIN HYDROCHLORIDE [Concomitant]
  17. PARACETAMOL [Concomitant]
  18. PREDNISOLONE [Concomitant]
  19. PROCHLORPERAZINE MELEATE [Concomitant]
  20. ALBUTEROL [Concomitant]
  21. TEMAZEPAM [Concomitant]
  22. TRAMADOL HCL [Concomitant]

REACTIONS (5)
  - DERMATITIS EXFOLIATIVE [None]
  - DERMATITIS PSORIASIFORM [None]
  - OEDEMA [None]
  - PERIPHERAL ISCHAEMIA [None]
  - SKIN ULCER [None]
